FAERS Safety Report 22201612 (Version 1)
Quarter: 2023Q2

REPORT INFORMATION
  Report Type: Spontaneous
  Country: US (occurrence: None)
  Receive Date: 20230411
  Receipt Date: 20230411
  Transmission Date: 20230721
  Serious: Yes (Disabling)
  Sender: FDA-Public Use
  Company Number: None

PATIENT
  Age: 37 Year
  Sex: Female
  Weight: 63 kg

DRUGS (1)
  1. AMPHETAMINE\DEXTROAMPHETAMINE [Suspect]
     Active Substance: AMPHETAMINE\DEXTROAMPHETAMINE
     Indication: Attention deficit hyperactivity disorder
     Dosage: 1 TABLET TWICE A DAY ORAL
     Route: 048

REACTIONS (8)
  - Headache [None]
  - Hypoaesthesia [None]
  - Abdominal pain upper [None]
  - Gastrooesophageal reflux disease [None]
  - Eructation [None]
  - Product substitution issue [None]
  - Insomnia [None]
  - Impaired work ability [None]

NARRATIVE: CASE EVENT DATE: 20230404
